FAERS Safety Report 20186914 (Version 3)
Quarter: 2022Q1

REPORT INFORMATION
  Report Type: Spontaneous
  Country: DE (occurrence: DE)
  Receive Date: 20211215
  Receipt Date: 20220128
  Transmission Date: 20220423
  Serious: Yes (Hospitalization, Other)
  Sender: FDA-Public Use
  Company Number: DE-BAYER-2021A268003

PATIENT
  Age: 31 Year
  Sex: Female

DRUGS (2)
  1. KYLEENA [Suspect]
     Active Substance: LEVONORGESTREL
     Dosage: 17.5?G/DAY
     Route: 015
     Dates: start: 2018
  2. COVID-19 VACCINE [Concomitant]
     Indication: COVID-19 immunisation
     Dosage: UNK
     Dates: start: 2021, end: 2021

REACTIONS (5)
  - Ectopic pregnancy with contraceptive device [Recovered/Resolved]
  - Abortion of ectopic pregnancy [Recovered/Resolved]
  - Intra-abdominal haemorrhage [Recovered/Resolved]
  - Abdominal pain [Recovered/Resolved]
  - Drug ineffective [None]

NARRATIVE: CASE EVENT DATE: 20211201
